FAERS Safety Report 4688838-7 (Version None)
Quarter: 2005Q2

REPORT INFORMATION
  Report Type: 
  Country: None (occurrence: None)
  Receive Date: 20050613
  Receipt Date: 20050601
  Transmission Date: 20051028
  Serious: Yes (Life-Threatening, Hospitalization)
  Sender: FDA-Public Use
  Company Number: GB-GLAXOSMITHKLINE-B0383122A

PATIENT
  Age: 59 Year
  Sex: Female

DRUGS (3)
  1. AUGMENTIN '125' [Suspect]
     Dosage: 1.2G PER DAY
     Route: 040
     Dates: start: 20050518, end: 20050518
  2. SEROXAT [Concomitant]
     Dosage: 20MG PER DAY
     Route: 065
  3. IBUPROFEN [Concomitant]
     Route: 065

REACTIONS (5)
  - ANAPHYLACTIC REACTION [None]
  - BLOOD PRESSURE DECREASED [None]
  - HEART RATE INCREASED [None]
  - OXYGEN SATURATION DECREASED [None]
  - RESPIRATORY ARREST [None]
